FAERS Safety Report 6054725-5 (Version None)
Quarter: 2009Q1

REPORT INFORMATION
  Report Type: 
  Country: None (occurrence: None)
  Receive Date: 20090128
  Receipt Date: 20090120
  Transmission Date: 20090719
  Serious: Yes (Other)
  Sender: FDA-Public Use
  Company Number: ID-BRISTOL-MYERS SQUIBB COMPANY-14484448

PATIENT
  Age: 60 Year
  Sex: Male

DRUGS (1)
  1. GLUCOVANCE [Suspect]
     Indication: TYPE 2 DIABETES MELLITUS
     Dosage: 1 DOSAGE FORM = 5 MG/500 MG(METFORMIN HYDROCHLORIDE, GLIBENCLAMIDE)

REACTIONS (1)
  - CARDIOMYOPATHY [None]
